FAERS Safety Report 22067373 (Version 1)
Quarter: 2023Q1

REPORT INFORMATION
  Report Type: Spontaneous
  Country: US (occurrence: US)
  Receive Date: 20230307
  Receipt Date: 20230307
  Transmission Date: 20230417
  Serious: Yes (Hospitalization)
  Sender: FDA-Public Use
  Company Number: US-002147023-NVSC2023US048401

PATIENT
  Age: 75 Year
  Sex: Female

DRUGS (4)
  1. LINEZOLID [Suspect]
     Active Substance: LINEZOLID
     Indication: Product used for unknown indication
     Dosage: UNK
     Route: 065
  2. AMIKACIN [Suspect]
     Active Substance: AMIKACIN
     Indication: Product used for unknown indication
     Dosage: UNK
     Route: 042
  3. AMIKACIN [Suspect]
     Active Substance: AMIKACIN
     Dosage: UNK (EYE DROPS)
     Route: 047
  4. IMIPENEM [Suspect]
     Active Substance: IMIPENEM
     Indication: Product used for unknown indication
     Dosage: UNK
     Route: 065

REACTIONS (4)
  - Keratitis bacterial [Unknown]
  - Scleritis [Unknown]
  - Endophthalmitis [Unknown]
  - Drug resistance [Unknown]
